FAERS Safety Report 23948724 (Version 3)
Quarter: 2024Q2

REPORT INFORMATION
  Report Type: Spontaneous
  Country: US (occurrence: US)
  Receive Date: 20240607
  Receipt Date: 20240628
  Transmission Date: 20240716
  Serious: Yes (Other)
  Sender: FDA-Public Use
  Company Number: US-002147023-NVSC2024US119433

PATIENT
  Age: 54 Year
  Sex: Male
  Weight: 102.05 kg

DRUGS (2)
  1. COSENTYX [Suspect]
     Active Substance: SECUKINUMAB
     Indication: Ankylosing spondylitis
     Dosage: 150 MG/ML (3 MONTHS) (EVERY OTHER WEEK)
     Route: 058
     Dates: start: 20240304
  2. COSENTYX [Suspect]
     Active Substance: SECUKINUMAB
     Dosage: 300 MG, Q4W
     Route: 065

REACTIONS (3)
  - Condition aggravated [Unknown]
  - Benign familial pemphigus [Unknown]
  - Skin infection [Unknown]
